FAERS Safety Report 9502250 (Version 2)
Quarter: 2013Q3

REPORT INFORMATION
  Report Type: Spontaneous
  Country: CH (occurrence: CH)
  Receive Date: 20130906
  Receipt Date: 20130913
  Transmission Date: 20140515
  Serious: Yes (Hospitalization, Other)
  Sender: FDA-Public Use
  Company Number: CH-BIOGENIDEC-2013BI083286

PATIENT
  Age: 52 Year
  Sex: Male
  Weight: 68 kg

DRUGS (1)
  1. TYSABRI [Suspect]
     Indication: RELAPSING-REMITTING MULTIPLE SCLEROSIS
     Route: 042
     Dates: start: 2007, end: 20130815

REACTIONS (3)
  - Pulmonary embolism [Unknown]
  - Pneumonia [Unknown]
  - Deep vein thrombosis [Unknown]
